FAERS Safety Report 16014729 (Version 1)
Quarter: 2019Q1

REPORT INFORMATION
  Report Type: Spontaneous
  Country: US (occurrence: US)
  Receive Date: 20190227
  Receipt Date: 20190227
  Transmission Date: 20190418
  Serious: Yes (Other)
  Sender: FDA-Public Use
  Company Number: PHEH2019US008398

PATIENT
  Age: 75 Year
  Sex: Male

DRUGS (1)
  1. ENTRESTO [Suspect]
     Active Substance: SACUBITRIL\VALSARTAN
     Indication: CARDIAC FAILURE
     Dosage: 24 MG, BID
     Route: 048

REACTIONS (2)
  - Dyskinesia [Recovering/Resolving]
  - Muscle spasms [Recovering/Resolving]
